FAERS Safety Report 4389378-5 (Version None)
Quarter: 2004Q3

REPORT INFORMATION
  Report Type: 
  Country: None (occurrence: None)
  Receive Date: 20040701
  Receipt Date: 20040701
  Transmission Date: 20050211
  Serious: Yes (Hospitalization)
  Sender: FDA-Public Use
  Company Number: None

PATIENT
  Age: 78 Year
  Sex: Male
  Weight: 73 kg

DRUGS (2)
  1. MORPHINE [Suspect]
     Indication: PAIN
     Dosage: 4 MG Q2H PRN INTRAVENOUS
     Route: 042
     Dates: start: 20040222, end: 20040222
  2. FENTANYL [Concomitant]

REACTIONS (1)
  - RESPIRATORY DEPRESSION [None]
